FAERS Safety Report 5074732-9 (Version None)
Quarter: 2006Q3

REPORT INFORMATION
  Report Type: 
  Country: None (occurrence: None)
  Receive Date: 20060803
  Receipt Date: 20060726
  Transmission Date: 20061208
  Serious: Yes (Disabling)
  Sender: FDA-Public Use
  Company Number: 2006BL004341

PATIENT
  Age: 49 Year
  Sex: Male

DRUGS (2)
  1. MINIMS PHENYLEPHRINE HYDROCHLORIDE 10% (PHENYLEPHRINE HYDROCHLORIDE) [Suspect]
     Indication: MYDRIASIS
     Dosage: 1 DOSE FORM; OPHTHALMIC
     Route: 047
     Dates: start: 20060526, end: 20060526
  2. MINIMS TROPICAMIDE 0.5% (TROPICAMIDE) [Suspect]
     Indication: MYDRIASIS
     Dosage: 1 DOSE FORM OPHTHALMIC
     Route: 047
     Dates: start: 20060526, end: 20060526

REACTIONS (3)
  - DRUG INTERACTION [None]
  - PUPIL FIXED [None]
  - VISION BLURRED [None]
